FAERS Safety Report 11324249 (Version 1)
Quarter: 2015Q3

REPORT INFORMATION
  Report Type: Spontaneous
  Country: US (occurrence: US)
  Receive Date: 20150730
  Receipt Date: 20150730
  Transmission Date: 20151125
  Serious: No
  Sender: FDA-Public Use
  Company Number: US-009507513-1507USA008198

PATIENT
  Age: 30 Year
  Sex: Female
  Weight: 78.91 kg

DRUGS (1)
  1. NEXPLANON [Suspect]
     Active Substance: ETONOGESTREL
     Indication: UTERINE DISORDER
     Dosage: UNK, 3 YEARS
     Route: 059
     Dates: start: 20140403

REACTIONS (2)
  - Metrorrhagia [Unknown]
  - Product use issue [Unknown]

NARRATIVE: CASE EVENT DATE: 2014
